FAERS Safety Report 12296873 (Version 1)
Quarter: 2016Q2

REPORT INFORMATION
  Report Type: Spontaneous
  Country: PL (occurrence: PL)
  Receive Date: 20160422
  Receipt Date: 20160422
  Transmission Date: 20160815
  Serious: Yes (Hospitalization, Other)
  Sender: FDA-Public Use
  Company Number: PL-GLAXOSMITHKLINE-PL2016056046

PATIENT

DRUGS (2)
  1. NICOTINE. [Suspect]
     Active Substance: NICOTINE
  2. COTININE [Suspect]
     Active Substance: COTININE

REACTIONS (3)
  - Respiratory rate decreased [Unknown]
  - Loss of consciousness [Unknown]
  - Toxicity to various agents [Unknown]
